FAERS Safety Report 22145982 (Version 3)
Quarter: 2023Q2

REPORT INFORMATION
  Report Type: Report from Study
  Country: AE (occurrence: None)
  Receive Date: 20230328
  Receipt Date: 20230529
  Transmission Date: 20230722
  Serious: Yes (Hospitalization)
  Sender: FDA-Public Use
  Company Number: 2023A065561

PATIENT
  Age: 51 Year
  Sex: Female
  Weight: 36.4 kg

DRUGS (1)
  1. EVUSHELD [Suspect]
     Active Substance: CILGAVIMAB\TIXAGEVIMAB
     Indication: COVID-19 treatment
     Dosage: 3 ML/ONCE/SINGLE ADMINISTRATION -2 SEPARATE SEQUENTIAL IM INJECTIONS (ONE FOR AZD8895 AND ONE FOR...
     Route: 030
     Dates: start: 20220727

REACTIONS (1)
  - Septic shock [Recovered/Resolved]

NARRATIVE: CASE EVENT DATE: 20230121
